FAERS Safety Report 10400415 (Version 1)
Quarter: 2014Q3

REPORT INFORMATION
  Report Type: Spontaneous
  Country: US (occurrence: US)
  Receive Date: 20140821
  Receipt Date: 20140821
  Transmission Date: 20150326
  Serious: No
  Sender: FDA-Public Use
  Company Number: US-ASTRAZENECA-2013SE80694

PATIENT
  Age: 73 Year
  Sex: Female
  Weight: 63 kg

DRUGS (6)
  1. SYMBICORT [Suspect]
     Active Substance: BUDESONIDE\FORMOTEROL FUMARATE DIHYDRATE
     Indication: ASTHMA
     Dosage: 160  4.5MCG 2 PUFFS BID
     Route: 055
  2. SYMBICORT [Suspect]
     Active Substance: BUDESONIDE\FORMOTEROL FUMARATE DIHYDRATE
     Indication: CHRONIC OBSTRUCTIVE PULMONARY DISEASE
     Dosage: 160  4.5MCG 2 PUFFS BID
     Route: 055
  3. ALBUTEROL NEBULISER [Concomitant]
     Indication: ASTHMA
     Dosage: 2 0R 3 TIMES A DAY TID
     Route: 055
  4. ALBUTEROL NEBULISER [Concomitant]
     Indication: CHRONIC OBSTRUCTIVE PULMONARY DISEASE
     Dosage: 2 0R 3 TIMES A DAY TID
     Route: 055
  5. PROVENTIL RESCUE INHALER [Concomitant]
     Indication: ASTHMA
     Dosage: PRN
     Route: 055
  6. PROVENTIL RESCUE INHALER [Concomitant]
     Indication: CHRONIC OBSTRUCTIVE PULMONARY DISEASE
     Dosage: PRN
     Route: 055

REACTIONS (2)
  - Retching [Recovered/Resolved]
  - Medication error [Not Recovered/Not Resolved]
